FAERS Safety Report 5415409-7 (Version None)
Quarter: 2007Q3

REPORT INFORMATION
  Report Type: 
  Country: None (occurrence: None)
  Receive Date: 20070813
  Receipt Date: 20070813
  Transmission Date: 20080115
  Serious: No
  Sender: FDA-Public Use
  Company Number: None

PATIENT
  Age: 43 Year
  Sex: Male
  Weight: 88.4514 kg

DRUGS (1)
  1. ZICAM [Suspect]

REACTIONS (2)
  - AGEUSIA [None]
  - ANOSMIA [None]
